FAERS Safety Report 8008116-8 (Version None)
Quarter: 2011Q4

REPORT INFORMATION
  Report Type: 
  Country: None (occurrence: None)
  Receive Date: 20111227
  Receipt Date: 20111221
  Transmission Date: 20120403
  Serious: Yes (Death, Other)
  Sender: FDA-Public Use
  Company Number: PHHY2011MX108368

PATIENT
  Age: 90 Year
  Sex: Female

DRUGS (3)
  1. ISOSORBIDE DINITRATE [Concomitant]
     Indication: BLOOD PRESSURE ABNORMAL
     Dosage: 1 DF, Q12H (EVERY TWLEVE HOUR)
  2. EXELON [Suspect]
     Indication: DEMENTIA ALZHEIMER'S TYPE
     Dosage: 4.6MG\24 HRS, ONE PATCH A DAY
     Route: 062
     Dates: start: 20110101
  3. ANAPSIQUE [Concomitant]
     Indication: INSOMNIA
     Dosage: 1/2 TAB AT NIGHT

REACTIONS (7)
  - UPPER GASTROINTESTINAL HAEMORRHAGE [None]
  - ANAEMIA [None]
  - TACHYCARDIA [None]
  - CARDIAC ENZYMES INCREASED [None]
  - LOSS OF CONSCIOUSNESS [None]
  - CARDIAC ARREST [None]
  - RESPIRATORY FAILURE [None]
